FAERS Safety Report 10572934 (Version 1)
Quarter: 2014Q4

REPORT INFORMATION
  Report Type: Spontaneous
  Country: None (occurrence: None)
  Receive Date: 20141107
  Receipt Date: 20141107
  Transmission Date: 20150529
  Serious: Yes (Hospitalization, Other)
  Sender: FDA-Public Use
  Company Number: None

PATIENT
  Age: 18 Year
  Sex: Female
  Weight: 61.24 kg

DRUGS (2)
  1. FLUOXETINE [Suspect]
     Active Substance: FLUOXETINE\FLUOXETINE HYDROCHLORIDE
     Indication: DEPRESSION
     Dosage: 1 PILL, TAKEN BY MOUTH
     Dates: start: 20140530, end: 20140614
  2. FLUOXETINE [Suspect]
     Active Substance: FLUOXETINE\FLUOXETINE HYDROCHLORIDE
     Indication: ANXIETY
     Dosage: 1 PILL, TAKEN BY MOUTH
     Dates: start: 20140530, end: 20140614

REACTIONS (11)
  - Muscle twitching [None]
  - Chest pain [None]
  - Dizziness [None]
  - Inflammation [None]
  - Feeling abnormal [None]
  - Headache [None]
  - Nasopharyngitis [None]
  - Dyspnoea [None]
  - Serum serotonin increased [None]
  - Presyncope [None]
  - Heart rate increased [None]

NARRATIVE: CASE EVENT DATE: 20140613
